FAERS Safety Report 5105448-8 (Version None)
Quarter: 2006Q3

REPORT INFORMATION
  Report Type: 
  Country: None (occurrence: None)
  Receive Date: 20060915
  Receipt Date: 20060612
  Transmission Date: 20061208
  Serious: No
  Sender: FDA-Public Use
  Company Number: US-GLAXOSMITHKLINE-A0608634A

PATIENT
  Age: 57 Year
  Sex: Female

DRUGS (3)
  1. AVANDARYL [Suspect]
     Dosage: 4MG PER DAY
     Route: 048
     Dates: start: 20060522
  2. VERAPAMIL [Concomitant]
  3. INDAPAMIDE [Concomitant]

REACTIONS (3)
  - ASTHENIA [None]
  - BLOOD GLUCOSE DECREASED [None]
  - DRUG ADMINISTRATION ERROR [None]
